FAERS Safety Report 5553142-1 (Version None)
Quarter: 2007Q4

REPORT INFORMATION
  Report Type: 
  Country: None (occurrence: None)
  Receive Date: 20071212
  Receipt Date: 20070709
  Transmission Date: 20080405
  Serious: No
  Sender: FDA-Public Use
  Company Number: US-AMGEN-KDL229928

PATIENT
  Sex: Female
  Weight: 56.8 kg

DRUGS (2)
  1. ENBREL [Suspect]
     Indication: PSORIASIS
     Route: 058
     Dates: start: 20060918
  2. ORAL CONTRACEPTIVE NOS [Concomitant]

REACTIONS (4)
  - INJECTION SITE PAIN [None]
  - POLYMORPHIC LIGHT ERUPTION [None]
  - PRURITUS [None]
  - RASH PAPULAR [None]
